FAERS Safety Report 4499887-6 (Version None)
Quarter: 2004Q4

REPORT INFORMATION
  Report Type: 
  Country: None (occurrence: None)
  Receive Date: 20041108
  Receipt Date: 20041025
  Transmission Date: 20050328
  Serious: Yes (Hospitalization)
  Sender: FDA-Public Use
  Company Number: 2003161431FR

PATIENT
  Age: 66 Year
  Sex: Male

DRUGS (7)
  1. ALDACTONE [Suspect]
     Dosage: 25 MG, QD, ORAL
     Route: 048
     Dates: end: 20030428
  2. CORDARONE [Suspect]
     Dosage: 200 MG, QD, ORAL
     Route: 048
     Dates: end: 20030428
  3. PREVISCAN (FLUINDIONE) [Suspect]
     Dosage: ORAL
     Route: 048
     Dates: end: 20030428
  4. ALLOPURINOL [Suspect]
  5. BUMETANIDE [Suspect]
     Dosage: 5 MG, QD, ORAL
     Route: 048
     Dates: end: 20030428
  6. COVERSYL (PERINDOPRIL)  2 MG [Suspect]
     Dosage: 2 MG, QD, ORAL
     Route: 048
     Dates: end: 20030428
  7. ZOLOFT [Concomitant]

REACTIONS (5)
  - CARDIAC FAILURE [None]
  - CONDITION AGGRAVATED [None]
  - PETECHIAE [None]
  - PURPURA [None]
  - THROMBOCYTOPENIA [None]
